FAERS Safety Report 8017302-2 (Version None)
Quarter: 2012Q1

REPORT INFORMATION
  Report Type: 
  Country: None (occurrence: None)
  Receive Date: 20120102
  Receipt Date: 20111228
  Transmission Date: 20120608
  Serious: Yes (Other)
  Sender: FDA-Public Use
  Company Number: US-ASTRAZENECA-2011SE78775

PATIENT
  Age: 18309 Day
  Sex: Female
  Weight: 108.4 kg

DRUGS (16)
  1. THEO-DUR [Concomitant]
     Route: 048
     Dates: start: 20081017
  2. SINGULAIR [Concomitant]
     Route: 048
     Dates: start: 20081226
  3. SEROQUEL [Suspect]
     Route: 048
     Dates: start: 20060601
  4. TRAZODONE HCL [Concomitant]
     Route: 048
     Dates: start: 20081213
  5. PREDNISOLONE [Concomitant]
     Dosage: 10 MG 6 TABLET DAILY FOR 3 DAYS THEN 5 TABLETS DAILY FOR 3 DAYS
     Route: 048
     Dates: start: 20081226
  6. VALIUM [Concomitant]
     Route: 048
     Dates: start: 20081017
  7. SEROQUEL [Suspect]
     Route: 048
     Dates: start: 20081213
  8. PROZAC [Concomitant]
     Dates: start: 20060601
  9. PROZAC [Concomitant]
     Route: 048
     Dates: start: 20081017
  10. PREDNISOLONE [Concomitant]
     Route: 048
     Dates: start: 20081017
  11. TRAZODONE HCL [Concomitant]
     Dates: start: 20060601
  12. PROZAC [Concomitant]
     Route: 048
     Dates: start: 20081213
  13. ASPIRIN [Concomitant]
     Dates: start: 20081124
  14. TRAZODONE HCL [Concomitant]
     Dates: start: 20091006
  15. SEROQUEL [Suspect]
     Route: 048
     Dates: start: 20081017
  16. OXYCONTIN [Concomitant]
     Route: 048
     Dates: start: 20081021

REACTIONS (10)
  - OBESITY [None]
  - HYPERTENSION [None]
  - ASTHMA [None]
  - BACK PAIN [None]
  - NEPHROPATHY [None]
  - GLAUCOMA [None]
  - EYE DISORDER [None]
  - INTERVERTEBRAL DISC PROTRUSION [None]
  - SCIATICA [None]
  - MUSCLE SPASMS [None]
